FAERS Safety Report 8103669-3 (Version None)
Quarter: 2012Q1

REPORT INFORMATION
  Report Type: 
  Country: None (occurrence: None)
  Receive Date: 20120201
  Receipt Date: 20120116
  Transmission Date: 20120608
  Serious: Yes (Other)
  Sender: FDA-Public Use
  Company Number: CA-ROCHE-1031263

PATIENT

DRUGS (9)
  1. CYCLOPHOSPHAMIDE [Suspect]
     Indication: BURKITT'S LYMPHOMA
     Route: 042
  2. ETOPOSIDE [Suspect]
     Indication: BURKITT'S LYMPHOMA
  3. DOXORUBICIN HCL [Suspect]
     Indication: BURKITT'S LYMPHOMA
     Route: 042
  4. VINCRISTINE [Suspect]
     Indication: BURKITT'S LYMPHOMA
     Route: 042
  5. CYTARABINE [Suspect]
     Indication: BURKITT'S LYMPHOMA
     Route: 042
  6. IFOSFAMIDE [Suspect]
     Indication: BURKITT'S LYMPHOMA
     Route: 042
  7. MABTHERA [Suspect]
     Indication: BURKITT'S LYMPHOMA
  8. METHOTREXATE [Suspect]
     Indication: BURKITT'S LYMPHOMA
  9. PREDNISONE TAB [Suspect]
     Indication: BURKITT'S LYMPHOMA
     Route: 048

REACTIONS (9)
  - BACTERAEMIA [None]
  - URINARY TRACT INFECTION [None]
  - CLOSTRIDIUM DIFFICILE COLITIS [None]
  - FEBRILE NEUTROPENIA [None]
  - CARDIAC FAILURE CONGESTIVE [None]
  - ORAL CANDIDIASIS [None]
  - NEUROPATHY PERIPHERAL [None]
  - CELLULITIS [None]
  - HAEMATOTOXICITY [None]
